FAERS Safety Report 11756556 (Version 1)
Quarter: 2015Q4

REPORT INFORMATION
  Report Type: Spontaneous
  Country: US (occurrence: US)
  Receive Date: 20151119
  Receipt Date: 20151119
  Transmission Date: 20160304
  Serious: No
  Sender: FDA-Public Use
  Company Number: US-009507513-1511USA007582

PATIENT
  Age: 52 Year
  Sex: Male

DRUGS (8)
  1. SEROQUEL [Concomitant]
     Active Substance: QUETIAPINE FUMARATE
     Dosage: 400 MG, UNK
  2. BELSOMRA [Suspect]
     Active Substance: SUVOREXANT
     Indication: INSOMNIA
     Dosage: 20 MG/ DAILY
     Route: 048
  3. CARBAMAZEPINE. [Concomitant]
     Active Substance: CARBAMAZEPINE
     Dosage: 400 MG, UNK
  4. WAL-SOM (DOXYLAMINE SUCCINATE) [Concomitant]
     Indication: SLEEP DISORDER THERAPY
     Dosage: 25 MG, UNK
  5. LITHIUM CARBONATE. [Concomitant]
     Active Substance: LITHIUM CARBONATE
     Dosage: 250 MG, UNK
  6. CLONAZEPAM. [Concomitant]
     Active Substance: CLONAZEPAM
  7. DOXYLAMINE SUCCINATE. [Concomitant]
     Active Substance: DOXYLAMINE SUCCINATE
  8. ZONEGRAN [Concomitant]
     Active Substance: ZONISAMIDE
     Dosage: 100 MG, UNK

REACTIONS (1)
  - Drug ineffective [Unknown]
